FAERS Safety Report 9902914 (Version 4)
Quarter: 2014Q1

REPORT INFORMATION
  Report Type: Report from Study
  Country: AT (occurrence: AT)
  Receive Date: 20140217
  Receipt Date: 20140228
  Transmission Date: 20141002
  Serious: Yes (Hospitalization, Other)
  Sender: FDA-Public Use
  Company Number: PHHY2013AT124042

PATIENT
  Sex: Female
  Weight: 65 kg

DRUGS (4)
  1. EVEROLIMUS [Suspect]
     Indication: BREAST CANCER
     Route: 048
  2. EVEROLIMUS [Suspect]
     Route: 048
  3. EXEMESTANE [Concomitant]
     Indication: BREAST CANCER
     Dosage: 25 MG, DAILY
     Dates: start: 20130711
  4. PRAM//CITALOPRAM HYDROBROMIDE [Concomitant]
     Indication: MENTAL DISORDER
     Dosage: 20 MG

REACTIONS (11)
  - Hypercalcaemia [Recovered/Resolved]
  - Renal failure [Recovered/Resolved]
  - Febrile infection [Recovered/Resolved]
  - Malignant neoplasm progression [Not Recovered/Not Resolved]
  - Urinary tract infection [Recovered/Resolved]
  - Pneumonitis [Unknown]
  - Dyspnoea [Unknown]
  - Skin fissures [Recovered/Resolved]
  - Mucosal dryness [Recovered/Resolved]
  - Mucosal inflammation [Recovered/Resolved]
  - Anaemia [Recovered/Resolved]
